FAERS Safety Report 20328989 (Version 4)
Quarter: 2022Q1

REPORT INFORMATION
  Report Type: Report from Study
  Country: KR (occurrence: None)
  Receive Date: 20220112
  Receipt Date: 20220331
  Transmission Date: 20220423
  Serious: Yes (Hospitalization)
  Sender: FDA-Public Use
  Company Number: KR-Eisai Medical Research-EC-2022-106538

PATIENT
  Age: 56 Year
  Sex: Female
  Weight: 59.4 kg

DRUGS (8)
  1. LENVATINIB [Suspect]
     Active Substance: LENVATINIB
     Indication: Colorectal cancer
     Route: 048
     Dates: start: 20211209, end: 20220103
  2. PEMBROLIZUMAB [Suspect]
     Active Substance: PEMBROLIZUMAB
     Indication: Colorectal cancer
     Route: 041
     Dates: start: 20211209, end: 20211209
  3. PEMBROLIZUMAB [Suspect]
     Active Substance: PEMBROLIZUMAB
     Route: 041
     Dates: start: 20211230, end: 20211230
  4. FAVEZELIMAB [Suspect]
     Active Substance: FAVEZELIMAB
     Indication: Colorectal cancer
     Route: 041
     Dates: start: 20211209, end: 20211209
  5. FAVEZELIMAB [Suspect]
     Active Substance: FAVEZELIMAB
     Route: 041
     Dates: start: 20211230, end: 20211230
  6. CHOLECALCIFEROL [Concomitant]
     Active Substance: CHOLECALCIFEROL
     Dates: start: 201001
  7. DICAMAX [Concomitant]
     Dates: start: 201001
  8. ATORVASTATIN CALCIUM [Concomitant]
     Active Substance: ATORVASTATIN CALCIUM
     Dates: start: 201001

REACTIONS (1)
  - Acute kidney injury [Recovered/Resolved with Sequelae]

NARRATIVE: CASE EVENT DATE: 20220104
